FAERS Safety Report 6537859-8 (Version None)
Quarter: 2009Q4

REPORT INFORMATION
  Report Type: 
  Country: None (occurrence: None)
  Receive Date: 20091229
  Receipt Date: 20091109
  Transmission Date: 20100525
  Serious: No
  Sender: FDA-Public Use
  Company Number: 1000009997

PATIENT
  Age: 87 Year
  Sex: Male

DRUGS (6)
  1. BYSTOLIC [Suspect]
     Indication: TACHYCARDIA
     Dosage: 5 MG (5 MG,1 IN 1 D),ORAL
     Route: 048
     Dates: start: 20090701, end: 20091030
  2. PLAVIX (75 MILLIGRAM) [Concomitant]
  3. ASPIRIN (81 MILLIGRAM) [Concomitant]
  4. ALLOPURINOL (150 MILLIGRAM) [Concomitant]
  5. VITAMINS (NOS) [Concomitant]
  6. SUPPLEMENTS (NOS) [Concomitant]

REACTIONS (2)
  - ARTHRITIS [None]
  - OEDEMA [None]
